FAERS Safety Report 6259709-X (Version None)
Quarter: 2009Q3

REPORT INFORMATION
  Report Type: 
  Country: None (occurrence: None)
  Receive Date: 20090706
  Receipt Date: 20090706
  Transmission Date: 20100115
  Serious: No
  Sender: FDA-Public Use
  Company Number: None

PATIENT

DRUGS (1)
  1. AMBIEN [Suspect]
     Indication: INSOMNIA
     Dosage: 1 TABLET BEDTIME PO 4 NIGHTS
     Route: 048
     Dates: start: 20090213, end: 20090217

REACTIONS (4)
  - DRUG INEFFECTIVE [None]
  - INSOMNIA [None]
  - PARADOXICAL DRUG REACTION [None]
  - PRODUCT SUBSTITUTION ISSUE [None]
